FAERS Safety Report 19752757 (Version 1)
Quarter: 2021Q3

REPORT INFORMATION
  Report Type: Spontaneous
  Country: US (occurrence: US)
  Receive Date: 20210827
  Receipt Date: 20210827
  Transmission Date: 20211014
  Serious: Yes (Hospitalization, Other)
  Sender: FDA-Public Use
  Company Number: US-AMGEN-USASP2021130597

PATIENT
  Age: 70 Year
  Sex: Female

DRUGS (1)
  1. OTEZLA [Suspect]
     Active Substance: APREMILAST
     Indication: PSORIASIS
     Dosage: UNK
     Route: 065

REACTIONS (3)
  - Condition aggravated [Not Recovered/Not Resolved]
  - Heart valve replacement [Not Recovered/Not Resolved]
  - Cerebrovascular accident [Not Recovered/Not Resolved]

NARRATIVE: CASE EVENT DATE: 202104
